FAERS Safety Report 5635554-0 (Version None)
Quarter: 2008Q1

REPORT INFORMATION
  Report Type: 
  Country: None (occurrence: None)
  Receive Date: 20080222
  Receipt Date: 20080212
  Transmission Date: 20080703
  Serious: Yes (Other)
  Sender: FDA-Public Use
  Company Number: US-PFIZER INC-2008015109

PATIENT
  Age: 32 Year
  Sex: Male

DRUGS (1)
  1. CHANTIX [Suspect]

REACTIONS (12)
  - ABNORMAL BEHAVIOUR [None]
  - ABNORMAL DREAMS [None]
  - ANGER [None]
  - DYSGEUSIA [None]
  - FEELING ABNORMAL [None]
  - HALLUCINATION [None]
  - LOSS OF CONSCIOUSNESS [None]
  - MALAISE [None]
  - NAUSEA [None]
  - SLEEP DISORDER [None]
  - SUICIDAL IDEATION [None]
  - TEARFULNESS [None]
